FAERS Safety Report 16768648 (Version 1)
Quarter: 2019Q3

REPORT INFORMATION
  Report Type: Spontaneous
  Country: CA (occurrence: CA)
  Receive Date: 20190903
  Receipt Date: 20190903
  Transmission Date: 20191005
  Serious: Yes (Hospitalization)
  Sender: FDA-Public Use
  Company Number: CA-GLAXOSMITHKLINE-CA2019GSK159887

PATIENT

DRUGS (3)
  1. LITHIUM CARBONATE. [Suspect]
     Active Substance: LITHIUM CARBONATE
     Indication: BIPOLAR DISORDER
     Dosage: 300 MG, UNK (STARTED 8 YEARS AGO)
     Route: 048
  2. LITHIUM CARBONATE. [Suspect]
     Active Substance: LITHIUM CARBONATE
     Indication: PRODUCT USE IN UNAPPROVED INDICATION
     Dosage: UNK (DOSE WAS ADJUSTED, STOPPED THIS WINTER)
     Route: 048
  3. WELLBUTRIN [Suspect]
     Active Substance: BUPROPION HYDROCHLORIDE
     Indication: BIPOLAR DISORDER
     Dosage: UNK (STOPPED THIS WINTER)
     Route: 048

REACTIONS (8)
  - Hypothyroidism [Unknown]
  - Migraine [Unknown]
  - Toxicity to various agents [Unknown]
  - Hypertension [Unknown]
  - Arthralgia [Unknown]
  - Product use in unapproved indication [Unknown]
  - Nausea [Unknown]
  - Renal disorder [Unknown]
